FAERS Safety Report 9914056 (Version 1)
Quarter: 2014Q1

REPORT INFORMATION
  Report Type: Spontaneous
  Country: DE (occurrence: DE)
  Receive Date: 20140220
  Receipt Date: 20140220
  Transmission Date: 20141002
  Serious: Yes (Hospitalization, Other)
  Sender: FDA-Public Use
  Company Number: DE-GLAXOSMITHKLINE-D0082872A

PATIENT
  Age: 1 Day
  Sex: Female
  Weight: 3.7 kg

DRUGS (3)
  1. LAMOTRIGINE [Suspect]
     Indication: BIPOLAR DISORDER
     Dosage: 100MG THREE TIMES PER DAY
     Route: 064
     Dates: start: 20120806, end: 20130509
  2. CITALOPRAM [Suspect]
     Indication: DEPRESSION
     Dosage: 30MG PER DAY
     Route: 064
     Dates: start: 20120806, end: 20130509
  3. VITAMINS + MINERALS [Concomitant]
     Indication: PROPHYLAXIS OF NEURAL TUBE DEFECT
     Dosage: .4MG PER DAY
     Route: 064

REACTIONS (3)
  - Neonatal infection [Recovered/Resolved]
  - Feeding disorder neonatal [Recovered/Resolved]
  - Somnolence [Recovered/Resolved]
